FAERS Safety Report 19825403 (Version 1)
Quarter: 2021Q3

REPORT INFORMATION
  Report Type: Spontaneous
  Country: DE (occurrence: DE)
  Receive Date: 20210914
  Receipt Date: 20210914
  Transmission Date: 20211014
  Serious: Yes (Hospitalization)
  Sender: FDA-Public Use
  Company Number: DE-NOVOPROD-843297

PATIENT
  Age: 83 Year
  Sex: Male
  Weight: 69 kg

DRUGS (7)
  1. METOPROLOL. [Concomitant]
     Active Substance: METOPROLOL
     Dosage: 47.5 MG, 1?0?1?0, RETARD?TABLETTEN
     Route: 048
  2. TORASEMID [Concomitant]
     Active Substance: TORSEMIDE
     Dosage: 10 MG, 1?0?0?0, TABLETTEN
     Route: 048
  3. NOVORAPID [Suspect]
     Active Substance: INSULIN ASPART
     Indication: TYPE 2 DIABETES MELLITUS
     Dosage: UNK
     Route: 058
  4. PROTAPHANE [Suspect]
     Active Substance: INSULIN HUMAN
     Indication: TYPE 2 DIABETES MELLITUS
     Dosage: 100 I.E./ML, 12?0?5?0, FERTIGSPRITZEN
     Route: 058
  5. MARCUMAR [Concomitant]
     Active Substance: PHENPROCOUMON
     Dosage: 3 MG, ACCORDING TO PLAN, TABLETS
     Route: 048
  6. MAGNESIUM ASPARTATE [Concomitant]
     Active Substance: MAGNESIUM ASPARTATE
     Dosage: 121,525 MG, IF NECESSARY, EFFERVESCENT TABLETS
     Route: 048
  7. RAMIPRIL. [Concomitant]
     Active Substance: RAMIPRIL
     Dosage: 5 MG, 0.5?0?0?0, TABLETS
     Route: 048

REACTIONS (9)
  - Extremity necrosis [Unknown]
  - Blood glucose increased [Unknown]
  - Peripheral arterial occlusive disease [Unknown]
  - Dementia [Unknown]
  - Pulse absent [Unknown]
  - Pedal pulse abnormal [Unknown]
  - Erythema [Unknown]
  - Postoperative wound complication [Unknown]
  - Feeling hot [Unknown]

NARRATIVE: CASE EVENT DATE: 20210108
